FAERS Safety Report 8842154 (Version 1)
Quarter: 2012Q4

REPORT INFORMATION
  Report Type: 
  Country: US (occurrence: US)
  Receive Date: 20121016
  Receipt Date: 20121016
  Transmission Date: 20130627
  Serious: Yes (Death, Other)
  Sender: FDA-Public Use
  Company Number: PHHY2012US090650

PATIENT
  Age: 19 Year
  Sex: Male

DRUGS (6)
  1. TERBINAFINE [Suspect]
  2. MICAFUNGIN [Concomitant]
  3. AMBISOME [Concomitant]
  4. VORICONAZOLE [Concomitant]
     Indication: WEIGHT DECREASED
  5. ALBENDAZOLE [Concomitant]
  6. POSACONAZOLE [Concomitant]
     Indication: WEIGHT DECREASED

REACTIONS (4)
  - Pneumonia fungal [Fatal]
  - Infection [Fatal]
  - Mental status changes [Unknown]
  - Drug ineffective [Unknown]
